FAERS Safety Report 14094569 (Version 2)
Quarter: 2017Q4

REPORT INFORMATION
  Report Type: Report from Study
  Country: ID (occurrence: ID)
  Receive Date: 20171016
  Receipt Date: 20171214
  Transmission Date: 20180321
  Serious: Yes (Death, Life-Threatening, Hospitalization, Other)
  Sender: FDA-Public Use
  Company Number: ID-BAYER-2017-192437

PATIENT
  Age: 72 Year
  Sex: Male

DRUGS (1)
  1. NEXAVAR [Suspect]
     Active Substance: SORAFENIB
     Indication: HEPATOCELLULAR CARCINOMA
     Dosage: 2 X 200 MG, UNK
     Route: 048
     Dates: start: 201708, end: 20171129

REACTIONS (2)
  - Ulcer [Recovered/Resolved]
  - Loss of consciousness [Fatal]

NARRATIVE: CASE EVENT DATE: 201709
